FAERS Safety Report 10152908 (Version 1)
Quarter: 2014Q2

REPORT INFORMATION
  Report Type: Spontaneous
  Country: US (occurrence: US)
  Receive Date: 20140505
  Receipt Date: 20140505
  Transmission Date: 20141212
  Serious: Yes (Other)
  Sender: FDA-Public Use
  Company Number: US-GLAXOSMITHKLINE-A1071810A

PATIENT
  Age: 44 Year
  Sex: Female

DRUGS (3)
  1. COREG [Suspect]
     Indication: PRODUCT USED FOR UNKNOWN INDICATION
     Dosage: 3.125MG TWICE PER DAY
     Route: 048
  2. METHADONE [Suspect]
     Indication: PRODUCT USED FOR UNKNOWN INDICATION
     Dosage: 40MG PER DAY
     Route: 048
  3. KLONOPIN [Suspect]
     Indication: PRODUCT USED FOR UNKNOWN INDICATION
     Dosage: 1MG FOUR TIMES PER DAY
     Route: 048

REACTIONS (44)
  - Deafness [Unknown]
  - Visual impairment [Unknown]
  - Hypoaesthesia [Unknown]
  - Pain in extremity [Unknown]
  - Neck pain [Unknown]
  - Back pain [Unknown]
  - Musculoskeletal pain [Unknown]
  - Dysphagia [Unknown]
  - Headache [Unknown]
  - Fatigue [Unknown]
  - Weight decreased [Unknown]
  - Eye irritation [Unknown]
  - Photophobia [Unknown]
  - Choking sensation [Unknown]
  - Vision blurred [Unknown]
  - Palpitations [Unknown]
  - Muscle spasms [Unknown]
  - Dizziness [Unknown]
  - Dyspnoea exertional [Unknown]
  - Extrasystoles [Unknown]
  - Peripheral swelling [Unknown]
  - Palpitations [Unknown]
  - Constipation [Unknown]
  - Nausea [Unknown]
  - Diarrhoea [Unknown]
  - Gastrooesophageal reflux disease [Unknown]
  - Change of bowel habit [Unknown]
  - Libido decreased [Unknown]
  - Micturition urgency [Unknown]
  - Joint stiffness [Unknown]
  - Myalgia [Unknown]
  - Asthenia [Unknown]
  - Arthralgia [Unknown]
  - Balance disorder [Unknown]
  - Disturbance in attention [Unknown]
  - Paraesthesia [Unknown]
  - Amnesia [Unknown]
  - Paranoia [Unknown]
  - Obsessive thoughts [Unknown]
  - Depression [Unknown]
  - Mental disorder [Unknown]
  - Anxiety [Unknown]
  - Nervousness [Unknown]
  - Hot flush [Unknown]
